FAERS Safety Report 4706150-4 (Version None)
Quarter: 2005Q2

REPORT INFORMATION
  Report Type: 
  Country: None (occurrence: None)
  Receive Date: 20050629
  Receipt Date: 20050621
  Transmission Date: 20051028
  Serious: Yes (Other)
  Sender: FDA-Public Use
  Company Number: 2005048867

PATIENT
  Age: 82 Year
  Sex: 0

DRUGS (1)
  1. MACUGEN [Suspect]
     Indication: ILL-DEFINED DISORDER
     Dosage: UNK (0.3 MG), INTRAVENOUS
     Route: 042

REACTIONS (6)
  - AMBLYOPIA [None]
  - ANTERIOR CHAMBER FLARE [None]
  - ENDOPHTHALMITIS [None]
  - EYE INFECTION STAPHYLOCOCCAL [None]
  - IRITIS [None]
  - VITRITIS [None]
